FAERS Safety Report 20604919 (Version 3)
Quarter: 2022Q1

REPORT INFORMATION
  Report Type: Spontaneous
  Country: US (occurrence: US)
  Receive Date: 20220317
  Receipt Date: 20220331
  Transmission Date: 20220423
  Serious: Yes (Other)
  Sender: FDA-Public Use
  Company Number: US-UNITED THERAPEUTICS-UNT-2022-003923

PATIENT
  Age: 67 Year
  Sex: Male

DRUGS (4)
  1. TYVASO [Suspect]
     Active Substance: TREPROSTINIL
     Indication: Pulmonary arterial hypertension
     Dosage: UNK
     Dates: start: 20220214
  2. TYVASO [Suspect]
     Active Substance: TREPROSTINIL
     Dosage: 18 ?G, QID
     Dates: start: 202202
  3. TYVASO [Suspect]
     Active Substance: TREPROSTINIL
     Dosage: 12 ?G, QID
     Dates: start: 202202
  4. TYVASO [Suspect]
     Active Substance: TREPROSTINIL
     Dosage: 18 ?G, QID
     Dates: start: 20220215

REACTIONS (13)
  - Hypotension [Recovering/Resolving]
  - Cough [Unknown]
  - Throat irritation [Unknown]
  - Feeling abnormal [Unknown]
  - Abdominal pain [Unknown]
  - Pain [Unknown]
  - Dizziness [Unknown]
  - Hyperhidrosis [Unknown]
  - Cold sweat [Unknown]
  - Nausea [Unknown]
  - Retching [Unknown]
  - Disturbance in attention [Unknown]
  - Oedema [Unknown]

NARRATIVE: CASE EVENT DATE: 20220201
